FAERS Safety Report 8110757 (Version 2)
Quarter: 2013Q2

REPORT INFORMATION
  Report Type: Spontaneous
  Country: FR (occurrence: FR)
  Receive Date: 20110829
  Receipt Date: 20130627
  Transmission Date: 20140414
  Serious: Yes (Death, Hospitalization, Other)
  Sender: FDA-Public Use
  Company Number: FR-PFIZER INC-2011194629

PATIENT
  Age: 81 Year
  Sex: Female

DRUGS (8)
  1. XANAX [Suspect]
     Route: 048
  2. ZOPICLONE [Suspect]
     Route: 048
  3. CELIPROLOL [Concomitant]
  4. CYMBALTA [Concomitant]
  5. SPECIAFOLDINE [Concomitant]
  6. RISPERDAL [Concomitant]
  7. TARDYFERON [Concomitant]
  8. INSULIN DETEMIR [Concomitant]

REACTIONS (13)
  - Overdose [Recovered/Resolved with Sequelae]
  - Septic shock [Fatal]
  - Dehydration [Fatal]
  - Altered state of consciousness [Recovered/Resolved with Sequelae]
  - Coma [Recovered/Resolved with Sequelae]
  - Dyspnoea [Recovered/Resolved]
  - Cerebrovascular accident [Unknown]
  - Convulsion [Unknown]
  - Acute prerenal failure [Unknown]
  - Cardiac failure [Unknown]
  - Lung disorder [Unknown]
  - Systemic inflammatory response syndrome [Unknown]
  - Hepatocellular injury [Unknown]
